FAERS Safety Report 4339466-4 (Version None)
Quarter: 2004Q2

REPORT INFORMATION
  Report Type: 
  Country: None (occurrence: None)
  Receive Date: 20040412
  Receipt Date: 20040402
  Transmission Date: 20050107
  Serious: Yes (Hospitalization)
  Sender: FDA-Public Use
  Company Number: 2004195971JP

PATIENT
  Age: 78 Year
  Sex: Male

DRUGS (5)
  1. CABERGOLINE [Suspect]
     Indication: PARKINSON'S DISEASE
     Dosage: 0.5 MG/DAY,
     Dates: start: 20030311, end: 20030328
  2. CABERGOLINE [Suspect]
     Indication: PARKINSON'S DISEASE
     Dosage: 0.5 MG/DAY,
     Dates: start: 20030329, end: 20030414
  3. CEROCRAL (IFENPRODIL TARTRATE) [Concomitant]
  4. NEO DOPASTON [Concomitant]
  5. DOPS (DROXIDOPA) [Concomitant]

REACTIONS (1)
  - PNEUMONIA ASPIRATION [None]
